FAERS Safety Report 13711445 (Version 1)
Quarter: 2017Q3

REPORT INFORMATION
  Report Type: Spontaneous
  Country: US (occurrence: US)
  Receive Date: 20170701
  Receipt Date: 20170701
  Transmission Date: 20171127
  Serious: Yes (Hospitalization, Disabling)
  Sender: FDA-Public Use
  Company Number: None

PATIENT
  Age: 74 Year
  Sex: Female
  Weight: 45 kg

DRUGS (1)
  1. VALIUM [Suspect]
     Active Substance: DIAZEPAM
     Indication: ANXIETY
     Dosage: ?          OTHER STRENGTH:MG;?
     Route: 048

REACTIONS (8)
  - Anxiety [None]
  - Panic attack [None]
  - Neurological symptom [None]
  - Seizure [None]
  - Withdrawal syndrome [None]
  - Drug tolerance [None]
  - Depression [None]
  - Quality of life decreased [None]

NARRATIVE: CASE EVENT DATE: 19860101
